FAERS Safety Report 21746647 (Version 2)
Quarter: 2023Q1

REPORT INFORMATION
  Report Type: Spontaneous
  Country: ES (occurrence: ES)
  Receive Date: 20221219
  Receipt Date: 20230202
  Transmission Date: 20230418
  Serious: Yes (Other)
  Sender: FDA-Public Use
  Company Number: ES-002147023-NVSC2022ES288340

PATIENT
  Sex: Female

DRUGS (1)
  1. KISQALI [Suspect]
     Active Substance: RIBOCICLIB
     Indication: Product used for unknown indication
     Dosage: UNK (21 DAY REGIMEN AND THEN A 10-DAY BREAK)
     Route: 065

REACTIONS (3)
  - Faecaloma [Unknown]
  - Rectal prolapse [Unknown]
  - Pruritus [Unknown]
